FAERS Safety Report 8415598-6 (Version None)
Quarter: 2012Q2

REPORT INFORMATION
  Report Type: 
  Country: None (occurrence: None)
  Receive Date: 20120606
  Receipt Date: 20120529
  Transmission Date: 20120825
  Serious: Yes (Death)
  Sender: FDA-Public Use
  Company Number: DK-BRISTOL-MYERS SQUIBB COMPANY-16446841

PATIENT
  Age: 79 Year
  Sex: Female

DRUGS (17)
  1. WARFARIN SODIUM [Concomitant]
     Indication: ANTICOAGULANT THERAPY
  2. CODEINE [Concomitant]
     Indication: ANALGESIC THERAPY
  3. PREDNISOLONE [Suspect]
     Indication: DIFFUSE LARGE B-CELL LYMPHOMA
     Dosage: DOSIS: DOSERES EFTER KURSKEMA HVER 3. UGE,
     Route: 042
     Dates: start: 20110125, end: 20110501
  4. FERRO DURETTER [Concomitant]
     Indication: MINERAL SUPPLEMENTATION
  5. VITAMIN D [Concomitant]
  6. PERINDOPRIL ERBUMINE [Concomitant]
     Indication: HYPERTENSION
  7. PIVMECILLINAM HCL [Concomitant]
     Indication: CYSTITIS
     Dosage: TRADE: PENOMAX
     Dates: start: 20120129
  8. RASBURICASE [Concomitant]
     Indication: TUMOUR LYSIS SYNDROME
     Dates: start: 20120124, end: 20120124
  9. LANSOPRAZOLE [Concomitant]
     Indication: GASTROOESOPHAGEAL REFLUX DISEASE
  10. FUROSEMIDE [Concomitant]
     Indication: DIURETIC THERAPY
  11. BISOPROLOL FUMARATE [Concomitant]
     Indication: HYPERTENSION
  12. ETOPOSIDE [Suspect]
     Indication: DIFFUSE LARGE B-CELL LYMPHOMA
     Dosage: DOSIS: DOSERES EFTER KURSKEMA HVER 3. UGE
     Route: 042
     Dates: start: 20110125, end: 20110501
  13. ONCOVIN [Suspect]
     Indication: DIFFUSE LARGE B-CELL LYMPHOMA
     Dosage: DOSIS: DOSERES EFTER KURSKEMA HVER 3. UGE
     Route: 042
     Dates: start: 20110125, end: 20110501
  14. CITALOPRAM HYDROBROMIDE [Concomitant]
     Indication: DEPRESSION
  15. CYCLOPHOSPHAMIDE [Suspect]
     Indication: DIFFUSE LARGE B-CELL LYMPHOMA
     Dosage: DOSIS: DOSERES EFTER KURSKEMA HVER 3. UGE
     Route: 042
     Dates: start: 20110125, end: 20110501
  16. MABTHERA [Suspect]
     Indication: DIFFUSE LARGE B-CELL LYMPHOMA
     Dosage: DOSIS: DOSERES EFTER KURSKEMA HVER 3. UGE
     Route: 042
     Dates: start: 20110125, end: 20110501
  17. SYMBICORT [Concomitant]
     Indication: LUNG DISORDER
     Dosage: TURBOHALER

REACTIONS (2)
  - HEPATIC FAILURE [None]
  - HEPATITIS B [None]
